FAERS Safety Report 10598290 (Version 2)
Quarter: 2014Q4

REPORT INFORMATION
  Report Type: Report from Study
  Country: US (occurrence: US)
  Receive Date: 20141121
  Receipt Date: 20141121
  Transmission Date: 20150529
  Serious: Yes (Other)
  Sender: FDA-Public Use
  Company Number: US-SA-2013SA115500

PATIENT
  Age: 37 Year
  Sex: Male

DRUGS (7)
  1. VALIUM [Concomitant]
     Active Substance: DIAZEPAM
  2. VIAGRA [Concomitant]
     Active Substance: SILDENAFIL CITRATE
     Indication: ERECTILE DYSFUNCTION
  3. AUBAGIO [Suspect]
     Active Substance: TERIFLUNOMIDE
     Indication: MULTIPLE SCLEROSIS
     Route: 048
     Dates: start: 20131029, end: 20140809
  4. CONCERTA [Concomitant]
     Active Substance: METHYLPHENIDATE HYDROCHLORIDE
     Indication: THOUGHT BLOCKING
  5. AUBAGIO [Suspect]
     Active Substance: TERIFLUNOMIDE
     Indication: MULTIPLE SCLEROSIS
     Route: 048
  6. ANALGESICS [Concomitant]
     Active Substance: UNSPECIFIED INGREDIENT
     Indication: NEPHROLITHIASIS
     Dosage: FORM: PILL
  7. SOMA [Concomitant]
     Active Substance: CARISOPRODOL

REACTIONS (15)
  - Sleep disorder [Unknown]
  - Stress [Unknown]
  - Central nervous system lesion [Unknown]
  - Abdominal pain [Recovered/Resolved]
  - Muscular weakness [Unknown]
  - Constipation [Unknown]
  - Myalgia [Unknown]
  - Wrong technique in drug usage process [Unknown]
  - Weight decreased [Unknown]
  - Condition aggravated [Unknown]
  - Apathy [Unknown]
  - Depression [Unknown]
  - Pain [Unknown]
  - Fatigue [Unknown]
  - Erectile dysfunction [Unknown]

NARRATIVE: CASE EVENT DATE: 200408
